FAERS Safety Report 8047815-9 (Version None)
Quarter: 2012Q1

REPORT INFORMATION
  Report Type: 
  Country: None (occurrence: None)
  Receive Date: 20120116
  Receipt Date: 20120111
  Transmission Date: 20120608
  Serious: Yes (Death, Hospitalization)
  Sender: FDA-Public Use
  Company Number: PHHY2011DE95348

PATIENT
  Sex: Female
  Weight: 88.9 kg

DRUGS (3)
  1. TASIGNA [Suspect]
     Dosage: 600 MG, DAILY
     Route: 048
     Dates: start: 20100705, end: 20100720
  2. TASIGNA [Suspect]
     Dosage: 800 MG, DAILY
     Route: 048
     Dates: start: 20100721
  3. TASIGNA [Suspect]
     Indication: CHRONIC MYELOID LEUKAEMIA
     Dosage: 800 MG, DAILY
     Route: 048
     Dates: start: 20100617, end: 20100704

REACTIONS (2)
  - THROMBOSIS [None]
  - GLIOBLASTOMA [None]
